FAERS Safety Report 9454041 (Version 1)
Quarter: 2013Q3

REPORT INFORMATION
  Report Type: Report from Study
  Country: US (occurrence: US)
  Receive Date: 20130812
  Receipt Date: 20130812
  Transmission Date: 20140515
  Serious: Yes (Hospitalization)
  Sender: FDA-Public Use
  Company Number: US-PFIZER INC-2013229185

PATIENT
  Age: 61 Year
  Sex: Female
  Weight: 90.7 kg

DRUGS (9)
  1. SUNITINIB MALATE [Suspect]
     Indication: METASTATIC RENAL CELL CARCINOMA
     Dosage: 50 MG, 1X/DAY
     Route: 048
     Dates: start: 20101021, end: 20120813
  2. SUNITINIB MALATE [Suspect]
     Dosage: 37.5 MG, 1X/DAY
     Route: 048
     Dates: start: 20120905
  3. DALTEPARIN SODIUM [Suspect]
     Indication: METASTATIC RENAL CELL CARCINOMA
     Dosage: 10000 IU, QD
     Route: 058
     Dates: start: 20101124
  4. VITAMIN D [Concomitant]
     Indication: SUPPLEMENTATION THERAPY
     Dosage: UNK
     Route: 048
     Dates: start: 20070927
  5. CARVEDILOL [Concomitant]
     Indication: HYPERTENSION
     Dosage: 3.125 MG
     Route: 048
     Dates: start: 201208
  6. CANDESARTAN [Concomitant]
     Indication: HYPERTENSION
     Dosage: 4 MG
     Route: 048
     Dates: start: 201208
  7. LEVOTHYROXINE [Concomitant]
     Indication: HYPOTHYROIDISM
     Dosage: 112 UG
     Route: 048
     Dates: start: 20130218
  8. LASIX [Concomitant]
     Indication: CARDIAC FAILURE CONGESTIVE
     Dosage: 20 MG
     Route: 048
     Dates: start: 20000829
  9. FAMOTIDINE [Concomitant]
     Indication: GASTROOESOPHAGEAL REFLUX DISEASE
     Dosage: 20 MG
     Route: 048
     Dates: start: 20130513

REACTIONS (1)
  - Dehydration [Recovered/Resolved]
